FAERS Safety Report 13874026 (Version 1)
Quarter: 2017Q3

REPORT INFORMATION
  Report Type: Spontaneous
  Country: US (occurrence: US)
  Receive Date: 20170816
  Receipt Date: 20170816
  Transmission Date: 20171127
  Serious: No
  Sender: FDA-Public Use
  Company Number: US-ENDO PHARMACEUTICALS INC-2016-005892

PATIENT
  Sex: Female
  Weight: 65.83 kg

DRUGS (2)
  1. SUMAVEL DOSEPRO [Suspect]
     Active Substance: SUMATRIPTAN SUCCINATE
     Indication: MIGRAINE
     Route: 058
     Dates: start: 2014
  2. ALEVE [Concomitant]
     Active Substance: NAPROXEN SODIUM
     Indication: MIGRAINE

REACTIONS (8)
  - Device malfunction [Recovered/Resolved]
  - Injection site pain [Unknown]
  - Injection site injury [Recovering/Resolving]
  - Incorrect dose administered [Recovered/Resolved]
  - Wrong technique in product usage process [Recovered/Resolved]
  - Expired product administered [Recovered/Resolved]
  - Injection site haemorrhage [Recovered/Resolved]
  - Underdose [Recovered/Resolved]

NARRATIVE: CASE EVENT DATE: 2014
